FAERS Safety Report 8670135 (Version 4)
Quarter: 2013Q2

REPORT INFORMATION
  Report Type: Report from Study
  Country: SE (occurrence: SE)
  Receive Date: 20120718
  Receipt Date: 20130426
  Transmission Date: 20140414
  Serious: Yes (Death)
  Sender: FDA-Public Use
  Company Number: SE-ROCHE-1088822

PATIENT
  Age: 76 Year
  Sex: Female
  Weight: 94 kg

DRUGS (14)
  1. TOCILIZUMAB [Suspect]
     Indication: RHEUMATOID ARTHRITIS
     Dosage: LAST DOSE PRIOR TO SAE: 06 JUNE 2012. 20 MG/ML
     Route: 042
     Dates: start: 20120229
  2. PREDNISOLON [Concomitant]
     Route: 048
  3. WARFARIN [Concomitant]
     Route: 048
  4. RESONIUM [Concomitant]
     Route: 048
  5. SODIUM BICARBONATE [Concomitant]
     Route: 048
     Dates: end: 201112
  6. ARANESP [Concomitant]
     Route: 058
  7. FURIX [Concomitant]
     Route: 048
  8. TRAMADOL [Concomitant]
     Route: 048
  9. PARACETAMOL [Concomitant]
     Route: 048
  10. CALCICHEW D3 FORTE [Concomitant]
  11. DIMOR [Concomitant]
     Route: 048
  12. INOLAXOL [Concomitant]
  13. PANODIL [Concomitant]
  14. LOSARTAN [Concomitant]

REACTIONS (1)
  - Cardiac arrest [Fatal]
